FAERS Safety Report 9167949 (Version 2)
Quarter: 2013Q2

REPORT INFORMATION
  Report Type: Spontaneous
  Country: GB (occurrence: GB)
  Receive Date: 20130318
  Receipt Date: 20130528
  Transmission Date: 20140414
  Serious: Yes (Other)
  Sender: FDA-Public Use
  Company Number: GB-ASTELLAS-2013US002895

PATIENT
  Age: 51 Year
  Sex: Male
  Weight: 73 kg

DRUGS (7)
  1. TARCEVA [Suspect]
     Indication: LUNG NEOPLASM MALIGNANT
     Dosage: 150 MG, UID/QD
     Route: 048
     Dates: start: 201210
  2. CELECOXIB [Concomitant]
     Indication: PAIN
     Dosage: 200 MG, UID/QD
     Route: 048
     Dates: start: 20130309
  3. DEXAMETHASONE [Concomitant]
     Indication: DECREASED APPETITE
     Dosage: 2 MG, UID/QD
     Route: 048
     Dates: start: 201211, end: 201304
  4. ZOMORPH [Concomitant]
     Indication: PAIN
     Dosage: 120 MG, BID
     Route: 048
     Dates: start: 201210
  5. LANSOPRAZOLE [Concomitant]
     Indication: DYSPEPSIA
     Dosage: 30 MG, UID/QD
     Route: 048
     Dates: start: 201212
  6. PARACETAMOL [Concomitant]
     Indication: PAIN
     Dosage: 1 G, UID/QD
     Route: 048
     Dates: start: 201210
  7. ORAMORPH [Concomitant]
     Indication: PAIN
     Dosage: 40 MG, PRN
     Route: 048
     Dates: start: 201210

REACTIONS (2)
  - Cerebrovascular accident [Unknown]
  - Cerebral infarction [Recovered/Resolved with Sequelae]
